FAERS Safety Report 7991542-0 (Version None)
Quarter: 2011Q4

REPORT INFORMATION
  Report Type: 
  Country: None (occurrence: None)
  Receive Date: 20111219
  Receipt Date: 20111214
  Transmission Date: 20120403
  Serious: Yes (Other)
  Sender: FDA-Public Use
  Company Number: US-ROCHE-792871

PATIENT
  Sex: Male
  Weight: 83.082 kg

DRUGS (2)
  1. ACCUTANE [Suspect]
     Indication: SWEAT GLAND INFECTION
     Route: 065
     Dates: start: 19900401, end: 19900630
  2. ACCUTANE [Suspect]
     Dates: start: 19910601, end: 19910801

REACTIONS (4)
  - GASTROINTESTINAL DISORDER [None]
  - INTESTINAL OBSTRUCTION [None]
  - INFLAMMATORY BOWEL DISEASE [None]
  - EMOTIONAL DISTRESS [None]
